FAERS Safety Report 24132166 (Version 2)
Quarter: 2024Q3

REPORT INFORMATION
  Report Type: Spontaneous
  Country: CN (occurrence: CN)
  Receive Date: 20240724
  Receipt Date: 20240802
  Transmission Date: 20241016
  Serious: Yes (Other)
  Sender: BLUEPRINT MEDICINES
  Company Number: CN-Blueprint Medicines Corporation-LT-CN-2024-001454

PATIENT
  Age: 64 Year
  Sex: Female

DRUGS (2)
  1. AYVAKIT [Suspect]
     Active Substance: AVAPRITINIB
     Indication: Leiomyosarcoma
     Route: 048
  2. AYVAKIT [Suspect]
     Active Substance: AVAPRITINIB
     Route: 041

REACTIONS (7)
  - Ascites [Recovering/Resolving]
  - Metastases to peritoneum [Recovering/Resolving]
  - Metastases to lymph nodes [Unknown]
  - Liver injury [Unknown]
  - Adverse drug reaction [Unknown]
  - Abdominal pain [Recovering/Resolving]
  - Off label use [Unknown]
